FAERS Safety Report 21759824 (Version 1)
Quarter: 2022Q4

REPORT INFORMATION
  Report Type: Spontaneous
  Country: DE (occurrence: DE)
  Receive Date: 20221221
  Receipt Date: 20221221
  Transmission Date: 20230113
  Serious: Yes (Hospitalization)
  Sender: FDA-Public Use
  Company Number: DE-MYLANLABS-2022M1134770

PATIENT
  Sex: Male

DRUGS (3)
  1. ETORICOXIB [Suspect]
     Active Substance: ETORICOXIB
     Indication: Psoriatic arthropathy
     Dosage: 90 MILLIGRAM
     Route: 065
     Dates: start: 20220704
  2. IBUPROFEN [Suspect]
     Active Substance: IBUPROFEN
     Indication: Psoriatic arthropathy
     Dosage: 1200 MILLIGRAM
     Route: 065
     Dates: start: 20210901
  3. LEFLUNOMIDE [Suspect]
     Active Substance: LEFLUNOMIDE
     Indication: Psoriatic arthropathy
     Dosage: 20 MILLIGRAM
     Route: 065
     Dates: start: 20200123

REACTIONS (1)
  - Spinal stenosis [Unknown]

NARRATIVE: CASE EVENT DATE: 20220110
